FAERS Safety Report 6917586-5 (Version None)
Quarter: 2010Q3

REPORT INFORMATION
  Report Type: 
  Country: None (occurrence: None)
  Receive Date: 20100810
  Receipt Date: 20100806
  Transmission Date: 20110219
  Serious: Yes (Other)
  Sender: FDA-Public Use
  Company Number: NZ-WYE-G05574810

PATIENT
  Sex: Female

DRUGS (5)
  1. EFFEXOR XR [Suspect]
     Indication: DEPRESSION
     Dates: start: 20090601, end: 20100211
  2. EFFEXOR XR [Suspect]
     Dosage: 3X75MG DAILY
     Dates: start: 20100101
  3. ATIVAN [Concomitant]
     Dosage: UNKNOWN
  4. ZOPICLONE [Concomitant]
     Dosage: UNKNOWN
  5. ACETAMINOPHEN W/ CODEINE [Concomitant]
     Dosage: UNKNOWN

REACTIONS (4)
  - ARTHRALGIA [None]
  - CRYING [None]
  - DEPRESSED MOOD [None]
  - DRUG WITHDRAWAL SYNDROME [None]
